FAERS Safety Report 18577856 (Version 1)
Quarter: 2020Q4

REPORT INFORMATION
  Report Type: Spontaneous
  Country: TR (occurrence: TR)
  Receive Date: 20201204
  Receipt Date: 20201204
  Transmission Date: 20210114
  Serious: Yes (Other)
  Sender: FDA-Public Use
  Company Number: TR-SUN PHARMACEUTICAL INDUSTRIES LTD-2020RR-269329

PATIENT
  Age: 63 Year
  Sex: Male

DRUGS (4)
  1. ARIPIPRAZOLE. [Suspect]
     Active Substance: ARIPIPRAZOLE
     Indication: PARKINSON^S DISEASE
     Dosage: 20 MILLIGRAM, UNK
     Route: 065
  2. QUETIAPINE. [Suspect]
     Active Substance: QUETIAPINE
     Indication: PARKINSON^S DISEASE
     Dosage: 300 MILLIGRAMS, UNK
     Route: 065
  3. VALPROIC ACID. [Suspect]
     Active Substance: VALPROIC ACID
     Indication: PARKINSON^S DISEASE
     Dosage: UNK
     Route: 065
  4. LITHIUM. [Suspect]
     Active Substance: LITHIUM
     Indication: PARKINSON^S DISEASE
     Route: 065

REACTIONS (4)
  - Drug hypersensitivity [Unknown]
  - Disease progression [Recovering/Resolving]
  - Extrapyramidal disorder [Recovering/Resolving]
  - Freezing phenomenon [Recovering/Resolving]
